FAERS Safety Report 5507690-0 (Version None)
Quarter: 2007Q4

REPORT INFORMATION
  Report Type: 
  Country: None (occurrence: None)
  Receive Date: 20071106
  Receipt Date: 20071030
  Transmission Date: 20080405
  Serious: Yes (Life-Threatening, Hospitalization)
  Sender: FDA-Public Use
  Company Number: B0492156A

PATIENT
  Age: 75 Year
  Sex: Male

DRUGS (12)
  1. CARVEDILOL [Suspect]
     Indication: HYPERTENSION
     Dosage: 10MG TWICE PER DAY
     Route: 048
     Dates: start: 20070615, end: 20070925
  2. HANP [Suspect]
     Indication: OLIGURIA
     Route: 042
     Dates: start: 20070925, end: 20070925
  3. PRONON [Suspect]
     Indication: ATRIAL FIBRILLATION
     Dosage: 150MG THREE TIMES PER DAY
     Route: 048
     Dates: start: 20070615
  4. LASIX [Suspect]
     Dosage: 10MG PER DAY
     Route: 048
     Dates: start: 20070615
  5. ADALAT [Concomitant]
  6. DOXAZOSIN MESYLATE [Concomitant]
  7. MAGLAX [Concomitant]
     Dates: start: 20070615
  8. GASMOTIN [Concomitant]
     Dates: start: 20070615
  9. DOGMATYL [Concomitant]
     Dates: start: 20070409
  10. PAXIL [Concomitant]
     Dates: start: 20070409
  11. HARNAL [Concomitant]
  12. DIURETIC [Concomitant]

REACTIONS (10)
  - BLOOD PRESSURE DECREASED [None]
  - BRADYCARDIA [None]
  - CARDIAC ARREST [None]
  - COMA [None]
  - DECREASED APPETITE [None]
  - DEPRESSED LEVEL OF CONSCIOUSNESS [None]
  - HEART RATE DECREASED [None]
  - RENAL IMPAIRMENT [None]
  - SHOCK [None]
  - SINUS ARRHYTHMIA [None]
